FAERS Safety Report 4790578-0 (Version None)
Quarter: 2005Q4

REPORT INFORMATION
  Report Type: 
  Country: None (occurrence: None)
  Receive Date: 20051006
  Receipt Date: 20050929
  Transmission Date: 20060501
  Serious: Yes (Death, Hospitalization)
  Sender: FDA-Public Use
  Company Number: US-MERCK-0510USA00620

PATIENT
  Age: 75 Year
  Sex: Female
  Weight: 64 kg

DRUGS (11)
  1. VIOXX [Suspect]
     Indication: RHEUMATOID ARTHRITIS
     Route: 048
     Dates: start: 20000522, end: 20020121
  2. PLAVIX [Concomitant]
     Route: 065
  3. MOBIC [Concomitant]
     Route: 065
  4. CLONIDINE [Concomitant]
     Route: 065
  5. TOPROL-XL [Concomitant]
     Route: 065
  6. HYDROCHLOROTHIAZIDE [Concomitant]
     Route: 065
  7. NORVASC [Concomitant]
     Route: 065
  8. PEPCID [Concomitant]
     Route: 065
  9. LOMOTIL [Concomitant]
     Route: 065
  10. VASOTEC [Concomitant]
     Route: 065
  11. MAXZIDE [Concomitant]
     Route: 065

REACTIONS (24)
  - ATRIAL FIBRILLATION [None]
  - CARDIAC FAILURE CONGESTIVE [None]
  - CEREBROVASCULAR ACCIDENT [None]
  - CEREBROVASCULAR INSUFFICIENCY [None]
  - CHRONIC OBSTRUCTIVE PULMONARY DISEASE [None]
  - DEMENTIA [None]
  - DERMATITIS CONTACT [None]
  - DRUG HYPERSENSITIVITY [None]
  - DRUG INTOLERANCE [None]
  - ESSENTIAL HYPERTENSION [None]
  - GAIT DISTURBANCE [None]
  - GOUT [None]
  - HYPERTENSIVE HEART DISEASE [None]
  - HYPOXIA [None]
  - LACUNAR INFARCTION [None]
  - MENTAL STATUS CHANGES [None]
  - MYOCARDIAL INFARCTION [None]
  - NON-SMALL CELL LUNG CANCER [None]
  - ORAL CANDIDIASIS [None]
  - OSTEOARTHRITIS [None]
  - PLEURAL EFFUSION [None]
  - PNEUMOTHORAX [None]
  - ULNA FRACTURE [None]
  - UROSEPSIS [None]
